FAERS Safety Report 5500236-2 (Version None)
Quarter: 2007Q4

REPORT INFORMATION
  Report Type: 
  Country: None (occurrence: None)
  Receive Date: 20071025
  Receipt Date: 20071011
  Transmission Date: 20080405
  Serious: Yes (Death, Life-Threatening, Hospitalization)
  Sender: FDA-Public Use
  Company Number: 2007SP003018

PATIENT
  Age: 65 Year
  Sex: Male
  Weight: 68.0396 kg

DRUGS (23)
  1. XOPENEX [Suspect]
     Dosage: SEE IMAGE
     Route: 055
     Dates: end: 20070728
  2. XOPENEX [Suspect]
     Dosage: SEE IMAGE
     Route: 055
     Dates: start: 20070728, end: 20070803
  3. XOPENEX [Suspect]
     Dosage: SEE IMAGE
     Route: 055
     Dates: start: 20070803, end: 20070807
  4. XOPENEX [Suspect]
     Dosage: SEE IMAGE
     Route: 055
     Dates: start: 20070807, end: 20070821
  5. CIPROFLOXACIN [Concomitant]
  6. PREDNISONE TAB [Concomitant]
  7. BROVANA [Concomitant]
  8. AVELOX [Concomitant]
  9. BRETHINE [Concomitant]
  10. DUONEB [Concomitant]
  11. FLOVENT [Concomitant]
  12. FOSAMAX [Concomitant]
  13. KETEK [Concomitant]
  14. ATORVASTATIN CALCIUM [Concomitant]
  15. MUCINEX [Concomitant]
  16. PRAVASTATIN [Concomitant]
  17. TOBRAMYCIN [Concomitant]
  18. ANTIBIOTICS [Concomitant]
  19. UNIPHYL [Concomitant]
  20. SINGULAIR [Concomitant]
  21. AMBIEN [Concomitant]
  22. TIOTROPIUM BROMIDE [Concomitant]
  23. ALBUTEROL SULFATE W/IPRATROPIUM BROMIDE [Concomitant]

REACTIONS (31)
  - ALVEOLITIS [None]
  - BLOOD CREATINE PHOSPHOKINASE MB INCREASED [None]
  - BLOOD GLUCOSE INCREASED [None]
  - BLOOD PH DECREASED [None]
  - BRONCHIECTASIS [None]
  - BUNDLE BRANCH BLOCK RIGHT [None]
  - CARDIAC ARREST [None]
  - CARDIOMEGALY [None]
  - CHRONIC OBSTRUCTIVE PULMONARY DISEASE [None]
  - CLOSTRIDIUM DIFFICILE COLITIS [None]
  - COMPUTERISED TOMOGRAM ABNORMAL [None]
  - CONDITION AGGRAVATED [None]
  - CUSHINGOID [None]
  - DRUG LEVEL BELOW THERAPEUTIC [None]
  - GENERAL PHYSICAL HEALTH DETERIORATION [None]
  - HYPERKALAEMIA [None]
  - HYPOTENSION [None]
  - LOWER RESPIRATORY TRACT INFECTION FUNGAL [None]
  - NEUTROPHIL PERCENTAGE INCREASED [None]
  - ORAL CANDIDIASIS [None]
  - PERICARDIAL EFFUSION [None]
  - PNEUMONIA [None]
  - RENAL FAILURE ACUTE [None]
  - RESPIRATORY FAILURE [None]
  - RESPIRATORY TRACT INFECTION FUNGAL [None]
  - SINUS TACHYCARDIA [None]
  - THERAPEUTIC RESPONSE DECREASED [None]
  - VENTRICULAR EXTRASYSTOLES [None]
  - VENTRICULAR FIBRILLATION [None]
  - VOMITING [None]
  - WHITE BLOOD CELL COUNT INCREASED [None]
